FAERS Safety Report 15847215 (Version 2)
Quarter: 2019Q1

REPORT INFORMATION
  Report Type: Report from Study
  Country: DE (occurrence: DE)
  Receive Date: 20190121
  Receipt Date: 20190214
  Transmission Date: 20190417
  Serious: Yes (Hospitalization)
  Sender: FDA-Public Use
  Company Number: DE-BIOGEN-2019BI00684837

PATIENT
  Age: 59 Year
  Sex: Female
  Weight: 75 kg

DRUGS (1)
  1. TECFIDERA [Suspect]
     Active Substance: DIMETHYL FUMARATE
     Indication: MULTIPLE SCLEROSIS
     Dosage: MAINTENANCE DOSE
     Route: 048
     Dates: start: 20170424

REACTIONS (1)
  - Otitis media [Recovered/Resolved]

NARRATIVE: CASE EVENT DATE: 201812
